FAERS Safety Report 6606448-9 (Version None)
Quarter: 2010Q1

REPORT INFORMATION
  Report Type: 
  Country: None (occurrence: None)
  Receive Date: 20100226
  Receipt Date: 20100215
  Transmission Date: 20100710
  Serious: Yes (Other)
  Sender: FDA-Public Use
  Company Number: PHEH2008US04165

PATIENT
  Sex: Female

DRUGS (17)
  1. AREDIA [Suspect]
     Dosage: 90 MG, UNK
     Route: 042
     Dates: end: 20061001
  2. ZOMETA [Suspect]
     Dosage: 4 MG, UNK
     Route: 042
  3. HERCEPTIN [Concomitant]
  4. TYLENOL-500 [Concomitant]
     Dosage: 650 MG, UNK
  5. FASLODEX [Concomitant]
     Dosage: UNK
     Dates: start: 20081001
  6. ARIMIDEX [Concomitant]
     Dosage: UNK
     Dates: start: 20041101, end: 20080901
  7. RADIATION [Concomitant]
  8. TAMOXIFEN CITRATE [Concomitant]
     Dosage: UNK
     Dates: start: 20021201
  9. DEXAMETHASONE [Concomitant]
  10. METFORMIN HYDROCHLORIDE [Concomitant]
  11. OXYCODONE HCL [Concomitant]
  12. LEVAQUIN [Concomitant]
  13. OXYCONTIN [Concomitant]
  14. RADIATION THERAPY [Concomitant]
  15. ZITHROMAX [Concomitant]
  16. FOSAMAX [Concomitant]
  17. KEFLEX [Concomitant]

REACTIONS (30)
  - ABDOMINAL HERNIA [None]
  - ANGER [None]
  - ANHEDONIA [None]
  - ANXIETY [None]
  - COSTOCHONDRITIS [None]
  - DEPRESSION [None]
  - DERMATITIS CONTACT [None]
  - DISABILITY [None]
  - DYSARTHRIA [None]
  - ERYTHEMA [None]
  - HAEMORRHOIDS [None]
  - HYPERCHOLESTEROLAEMIA [None]
  - HYPERLIPIDAEMIA [None]
  - HYPOAESTHESIA [None]
  - INJURY [None]
  - MEMORY IMPAIRMENT [None]
  - METASTASES TO SPINE [None]
  - MUSCULAR WEAKNESS [None]
  - MUSCULOSKELETAL CHEST PAIN [None]
  - MUSCULOSKELETAL PAIN [None]
  - OEDEMA PERIPHERAL [None]
  - OESOPHAGITIS [None]
  - OSTEONECROSIS [None]
  - PAIN [None]
  - RASH [None]
  - SKIN LESION [None]
  - SPINAL LAMINECTOMY [None]
  - STAPHYLOCOCCAL SKIN INFECTION [None]
  - TREMOR [None]
  - VISION BLURRED [None]
